FAERS Safety Report 20678338 (Version 5)
Quarter: 2022Q3

REPORT INFORMATION
  Report Type: Report from Study
  Country: GB (occurrence: GB)
  Receive Date: 20220406
  Receipt Date: 20220723
  Transmission Date: 20221026
  Serious: Yes (Other)
  Sender: FDA-Public Use
  Company Number: GB-NOVARTISPH-NVSC2022GB076838

PATIENT
  Sex: Male

DRUGS (1)
  1. OMNITROPE [Suspect]
     Active Substance: SOMATROPIN
     Indication: Pituitary-dependent Cushing^s syndrome
     Dosage: 0.2 MG, QD
     Route: 058

REACTIONS (4)
  - Depressed level of consciousness [Unknown]
  - Fall [Unknown]
  - Malaise [Unknown]
  - Product use in unapproved indication [Unknown]
